FAERS Safety Report 7602212-2 (Version None)
Quarter: 2011Q3

REPORT INFORMATION
  Report Type: 
  Country: None (occurrence: None)
  Receive Date: 20110711
  Receipt Date: 20110707
  Transmission Date: 20111222
  Serious: Yes (Death, Hospitalization, Other)
  Sender: FDA-Public Use
  Company Number: US-ABBOTT-11P-163-0731580-00

PATIENT
  Sex: Female
  Weight: 182.96 kg

DRUGS (5)
  1. COLAZAL [Concomitant]
     Indication: PRODUCT USED FOR UNKNOWN INDICATION
     Dates: start: 20110315, end: 20110515
  2. IMODIUM [Concomitant]
     Indication: PRODUCT USED FOR UNKNOWN INDICATION
  3. HUMIRA [Suspect]
     Indication: CROHN'S DISEASE
     Route: 058
     Dates: start: 20100501, end: 20110524
  4. HUMIRA [Suspect]
     Indication: COLITIS ULCERATIVE
  5. STEROIDS [Concomitant]
     Indication: PRODUCT USED FOR UNKNOWN INDICATION
     Dosage: TAPER 5 MG EVERY 2 WEEKS

REACTIONS (26)
  - DIZZINESS [None]
  - HYPOXIA [None]
  - LIGAMENT SPRAIN [None]
  - ARTHRITIS ENTEROPATHIC [None]
  - HEADACHE [None]
  - COLITIS [None]
  - HAEMORRHAGE INTRACRANIAL [None]
  - PSEUDOPOLYP [None]
  - HEAD INJURY [None]
  - TACHYCARDIA [None]
  - LACERATION [None]
  - DEATH [None]
  - SLEEP APNOEA SYNDROME [None]
  - ORTHOSTATIC HYPOTENSION [None]
  - ANAEMIA [None]
  - NARCOLEPSY [None]
  - HAEMATOCHEZIA [None]
  - SYNCOPE [None]
  - NERVOUS SYSTEM DISORDER [None]
  - CROHN'S DISEASE [None]
  - LOSS OF CONSCIOUSNESS [None]
  - ABDOMINAL PAIN [None]
  - HYPERTENSION [None]
  - ACUTE CORONARY SYNDROME [None]
  - FATIGUE [None]
  - MUCOUS STOOLS [None]
